FAERS Safety Report 24735297 (Version 2)
Quarter: 2025Q1

REPORT INFORMATION
  Report Type: Report from Study
  Country: US (occurrence: US)
  Receive Date: 20241215
  Receipt Date: 20250220
  Transmission Date: 20250409
  Serious: No
  Sender: SUNOVION
  Company Number: US-SUMITOMO PHARMA SWITZERLAND GMBH-2024SPA005548

PATIENT

DRUGS (25)
  1. ORGOVYX [Suspect]
     Active Substance: RELUGOLIX
     Indication: Prostate cancer
     Dosage: 360 MG, SINGLE
     Route: 048
     Dates: start: 20240930, end: 20240930
  2. ORGOVYX [Suspect]
     Active Substance: RELUGOLIX
     Dosage: 120 MG, QD
     Route: 048
     Dates: start: 20241001
  3. AMLODIPINE [Concomitant]
     Active Substance: AMLODIPINE BESYLATE
     Route: 065
  4. ATORVASTATIN [Concomitant]
     Active Substance: ATORVASTATIN
     Route: 065
  5. BUDESONIDE [Concomitant]
     Active Substance: BUDESONIDE
     Route: 065
  6. CARVEDILOL [Concomitant]
     Active Substance: CARVEDILOL
     Route: 065
  7. FUROSEMIDE [Concomitant]
     Active Substance: FUROSEMIDE
     Route: 065
  8. INCRUSE ELLIPTA [Concomitant]
     Active Substance: UMECLIDINIUM BROMIDE
     Route: 065
  9. LATANOPROST [Concomitant]
     Active Substance: LATANOPROST
     Route: 047
  10. LISINOPRIL [Concomitant]
     Active Substance: LISINOPRIL
     Route: 065
  11. METOPROLOL [Concomitant]
     Active Substance: METOPROLOL
     Route: 065
  12. VITAMINS [Concomitant]
     Active Substance: VITAMINS
     Route: 065
  13. PEPCID [Concomitant]
     Active Substance: FAMOTIDINE
     Route: 065
  14. PLAVIX [Concomitant]
     Active Substance: CLOPIDOGREL BISULFATE
     Route: 065
  15. HIGH DENSITY POLYETHYLENE [Concomitant]
     Active Substance: HIGH DENSITY POLYETHYLENE
     Route: 065
  16. POTASSIUM [Concomitant]
     Active Substance: POTASSIUM
     Route: 065
  17. TAMSULOSIN [Concomitant]
     Active Substance: TAMSULOSIN
     Route: 065
  18. INCRUSE ELLIPTA [Concomitant]
     Active Substance: UMECLIDINIUM BROMIDE
     Route: 065
  19. METOPROLOL SUCCINATE [Concomitant]
     Active Substance: METOPROLOL SUCCINATE
     Route: 065
  20. POLYETHYLENE GLYCOL [Concomitant]
     Active Substance: POLYETHYLENE GLYCOL
     Route: 065
  21. POTASSIUM CHLORIDE EXTENDED RELEASE [Concomitant]
     Active Substance: POTASSIUM CHLORIDE
     Route: 065
  22. ALPHA LIPOIC ACID [Concomitant]
     Active Substance: .ALPHA.-LIPOIC ACID
     Route: 065
  23. AMLODIPINE BESYLATE [Concomitant]
     Active Substance: AMLODIPINE BESYLATE
     Route: 065
  24. ATORVASTATIN CALCIUM [Concomitant]
     Active Substance: ATORVASTATIN CALCIUM
     Route: 065
  25. BUDESONIDE AND FORMOTEROL FUMARATE DIHYDRATE [Concomitant]
     Active Substance: BUDESONIDE\FORMOTEROL FUMARATE
     Route: 065

REACTIONS (3)
  - Decreased appetite [Unknown]
  - Dizziness [Unknown]
  - Asthenia [Unknown]
